FAERS Safety Report 25227706 (Version 1)
Quarter: 2025Q2

REPORT INFORMATION
  Report Type: Report from Study
  Country: US (occurrence: US)
  Receive Date: 20250423
  Receipt Date: 20250423
  Transmission Date: 20250716
  Serious: Yes (Other)
  Sender: ABBVIE
  Company Number: US-ABBVIE-6188374

PATIENT
  Age: 65 Year
  Sex: Female

DRUGS (2)
  1. SKYRIZI [Suspect]
     Active Substance: RISANKIZUMAB-RZAA
     Indication: Psoriasis
     Route: 058
     Dates: start: 20240810
  2. METFORMIN [Concomitant]
     Active Substance: METFORMIN HYDROCHLORIDE
     Indication: Product used for unknown indication

REACTIONS (9)
  - Knee operation [Unknown]
  - Arthropathy [Recovered/Resolved with Sequelae]
  - Purulence [Recovering/Resolving]
  - Back pain [Recovered/Resolved with Sequelae]
  - Nail bed disorder [Recovering/Resolving]
  - Psoriasis [Recovering/Resolving]
  - Dry skin [Not Recovered/Not Resolved]
  - Spinal operation [Not Recovered/Not Resolved]
  - Arthropathy [Not Recovered/Not Resolved]

NARRATIVE: CASE EVENT DATE: 20250112
